FAERS Safety Report 8914496 (Version 1)
Quarter: 2012Q4

REPORT INFORMATION
  Report Type: 
  Country: CA (occurrence: CA)
  Receive Date: 20121119
  Receipt Date: 20121119
  Transmission Date: 20130627
  Serious: Yes (Hospitalization)
  Sender: FDA-Public Use
  Company Number: PHBS2001CA04544

PATIENT
  Age: 86 Year
  Sex: Male

DRUGS (2)
  1. EXELON [Suspect]
     Dosage: 3.0 mg, BID
     Route: 048
     Dates: start: 20010114
  2. EXELON [Suspect]
     Dosage: 4.5 mg, BID
     Dates: start: 20010317

REACTIONS (5)
  - Haemoglobin decreased [Recovered/Resolved]
  - Hypotension [Recovered/Resolved]
  - Rash [Recovered/Resolved]
  - Abdominal pain [Recovered/Resolved]
  - Decreased appetite [Recovered/Resolved]
